FAERS Safety Report 21314385 (Version 1)
Quarter: 2022Q3

REPORT INFORMATION
  Report Type: Spontaneous
  Country: US (occurrence: None)
  Receive Date: 20220909
  Receipt Date: 20220909
  Transmission Date: 20221027
  Serious: No
  Sender: FDA-Public Use
  Company Number: None

PATIENT
  Age: 75 Year
  Sex: Female
  Weight: 26.76 kg

DRUGS (1)
  1. LEVOTHYROXINE [Suspect]
     Active Substance: LEVOTHYROXINE
     Dosage: OTHER FREQUENCY : PER MORNING 30 MIN;?
     Dates: start: 201505, end: 201512

REACTIONS (11)
  - Anxiety [None]
  - Restlessness [None]
  - Flushing [None]
  - Chills [None]
  - Chest discomfort [None]
  - Eyelid pain [None]
  - Headache [None]
  - Dizziness [None]
  - Decreased appetite [None]
  - Sleep apnoea syndrome [None]
  - Loss of personal independence in daily activities [None]
